FAERS Safety Report 7992436-7 (Version None)
Quarter: 2011Q4

REPORT INFORMATION
  Report Type: 
  Country: None (occurrence: None)
  Receive Date: 20111219
  Receipt Date: 20111216
  Transmission Date: 20120403
  Serious: Yes (Death, Other)
  Sender: FDA-Public Use
  Company Number: PHHY2011BR109822

PATIENT
  Age: 68 Year
  Sex: Male

DRUGS (5)
  1. INJECTIONS FOR KIDNEY PROBLEMS [Concomitant]
  2. SIMVASTATIN [Concomitant]
  3. RASILEZ [Suspect]
     Indication: HYPERTENSION
     Dosage: 300 MG, (HALF TABLET IN THE MORNING AND NIGHT)
  4. CLONAZEPAM [Concomitant]
  5. BENEVISTE [Concomitant]

REACTIONS (4)
  - HAEMATEMESIS [None]
  - CARDIAC ARREST [None]
  - WRONG TECHNIQUE IN DRUG USAGE PROCESS [None]
  - INTESTINAL HAEMORRHAGE [None]
